FAERS Safety Report 5340309-0 (Version None)
Quarter: 2007Q2

REPORT INFORMATION
  Report Type: 
  Country: None (occurrence: None)
  Receive Date: 20070405
  Receipt Date: 20070129
  Transmission Date: 20071010
  Serious: Yes (Death)
  Sender: FDA-Public Use
  Company Number: US200612002645

PATIENT
  Age: 51 Year
  Sex: Female
  Weight: 80.7 kg

DRUGS (4)
  1. CYMBALTA [Suspect]
     Indication: DEPRESSION
     Dosage: 60 MG
     Dates: start: 20061116
  2. ZOLOFT [Concomitant]
  3. XANAX /USA/ (ALPRAZOLAM) [Concomitant]
  4. AMBIEN [Concomitant]

REACTIONS (1)
  - COMPLETED SUICIDE [None]
